APPROVED DRUG PRODUCT: LEUCOVORIN CALCIUM
Active Ingredient: LEUCOVORIN CALCIUM
Strength: EQ 5MG BASE
Dosage Form/Route: TABLET;ORAL
Application: A071198 | Product #001 | TE Code: AB
Applicant: BARR PHARMACEUTICALS
Approved: Sep 24, 1987 | RLD: No | RS: No | Type: RX